FAERS Safety Report 24694790 (Version 1)
Quarter: 2024Q4

REPORT INFORMATION
  Report Type: Spontaneous
  Country: US (occurrence: US)
  Receive Date: 20241204
  Receipt Date: 20241204
  Transmission Date: 20250114
  Serious: No
  Sender: HIKMA
  Company Number: HIKM2405699

PATIENT

DRUGS (1)
  1. LISDEXAMFETAMINE [Suspect]
     Active Substance: LISDEXAMFETAMINE
     Indication: Attention deficit hyperactivity disorder
     Dosage: UNKNOWN
     Route: 065

REACTIONS (11)
  - Sensory disturbance [Unknown]
  - Loss of personal independence in daily activities [Unknown]
  - Anxiety [Unknown]
  - Emotional disorder [Unknown]
  - Fatigue [Unknown]
  - Brain fog [Unknown]
  - Therapeutic response changed [Unknown]
  - Lethargy [Unknown]
  - Drug ineffective [Unknown]
  - Social avoidant behaviour [Unknown]
  - Restlessness [Unknown]
